FAERS Safety Report 7691251 (Version 4)
Quarter: 2013Q3

REPORT INFORMATION
  Report Type: Spontaneous
  Country: IT (occurrence: None)
  Receive Date: 20101108
  Receipt Date: 20130705
  Transmission Date: 20140515
  Serious: Yes (Death, Life-Threatening, Hospitalization)
  Sender: FDA-Public Use
  Company Number: IT-021311

PATIENT
  Age: 76 Year
  Sex: Male
  Weight: 65 kg

DRUGS (2)
  1. CHLORAMBUCIL [Suspect]
     Indication: CHRONIC LYMPHOCYTIC LEUKAEMIA
     Dosage: 10 MG/M2 DAYS 1-7 EVERY 28 DAYS, ORAL
     Route: 048
     Dates: start: 20100118
  2. OFATUMUMAB [Suspect]
     Indication: CHRONIC LYMPHOCYTIC LEUKAEMIA
     Dosage: 300 MILLIGRAM, DAY 1, INTRAVENOUS (NOT OTHERWISE SPECIFIED)?
     Route: 042
     Dates: start: 20100118

REACTIONS (9)
  - Respiratory failure [None]
  - Condition aggravated [None]
  - Hypotension [None]
  - Troponin increased [None]
  - Dyspnoea [None]
  - Malaise [None]
  - Asthenia [None]
  - Bronchopneumonia [None]
  - Septic shock [None]
